FAERS Safety Report 7384339-6 (Version None)
Quarter: 2011Q1

REPORT INFORMATION
  Report Type: 
  Country: None (occurrence: None)
  Receive Date: 20110330
  Receipt Date: 20110328
  Transmission Date: 20110831
  Serious: Yes (Hospitalization)
  Sender: FDA-Public Use
  Company Number: FR-AMGEN-FRASP2011016309

PATIENT
  Age: 62 Year
  Sex: Female

DRUGS (2)
  1. TOPALGIC                           /00599202/ [Concomitant]
  2. NPLATE [Suspect]
     Indication: IDIOPATHIC THROMBOCYTOPENIC PURPURA
     Dosage: 250 A?G, UNK
     Route: 058
     Dates: start: 20101013, end: 20110127

REACTIONS (2)
  - ARTHRALGIA [None]
  - BONE PAIN [None]
